FAERS Safety Report 15408933 (Version 1)
Quarter: 2018Q3

REPORT INFORMATION
  Report Type: Spontaneous
  Country: US (occurrence: US)
  Receive Date: 20180920
  Receipt Date: 20180920
  Transmission Date: 20181010
  Serious: No
  Sender: FDA-Public Use
  Company Number: US-BAYER-2018-174833

PATIENT
  Age: 73 Year
  Sex: Male

DRUGS (7)
  1. XTANDI [Suspect]
     Active Substance: ENZALUTAMIDE
     Indication: METASTASES TO BONE
  2. AMBIEN [Concomitant]
     Active Substance: ZOLPIDEM TARTRATE
  3. LOSARTAN. [Concomitant]
     Active Substance: LOSARTAN
  4. ZOMETA [Concomitant]
     Active Substance: ZOLEDRONIC ACID
  5. XTANDI [Suspect]
     Active Substance: ENZALUTAMIDE
     Indication: PROSTATE CANCER
     Dosage: 160 MG, QD
     Route: 048
     Dates: start: 20171031
  6. XOFIGO [Suspect]
     Active Substance: RADIUM RA-223 DICHLORIDE
     Dosage: UNK
     Dates: start: 20180711
  7. ACTOS [Concomitant]
     Active Substance: PIOGLITAZONE HYDROCHLORIDE

REACTIONS (9)
  - Product odour abnormal [Unknown]
  - Decreased appetite [Not Recovered/Not Resolved]
  - Vision blurred [Recovered/Resolved]
  - Weight decreased [Recovered/Resolved]
  - Decreased appetite [None]
  - Fatigue [None]
  - Nausea [None]
  - Fatigue [Not Recovered/Not Resolved]
  - Muscular weakness [None]

NARRATIVE: CASE EVENT DATE: 201711
